FAERS Safety Report 17891187 (Version 1)
Quarter: 2020Q2

REPORT INFORMATION
  Report Type: Spontaneous
  Country: US (occurrence: US)
  Receive Date: 20200612
  Receipt Date: 20200612
  Transmission Date: 20200714
  Serious: No
  Sender: FDA-Public Use
  Company Number: US-PERRIGO-19US013433

PATIENT
  Age: 71 Year
  Sex: Female
  Weight: 68.03 kg

DRUGS (3)
  1. MINOXIDIL. [Suspect]
     Active Substance: MINOXIDIL
     Indication: ALOPECIA
     Dosage: 1/2 CAPFUL, QD
     Route: 061
     Dates: start: 20190425
  2. SPIRONOLACTONE. [Concomitant]
     Active Substance: SPIRONOLACTONE
     Indication: HORMONE LEVEL ABNORMAL
     Dosage: UNK
     Route: 065
     Dates: start: 201909
  3. MINOCYCLINE [Concomitant]
     Active Substance: MINOCYCLINE HYDROCHLORIDE
     Indication: INFECTION
     Dosage: UNK
     Route: 065
     Dates: start: 201910

REACTIONS (1)
  - Therapeutic product effect decreased [Unknown]

NARRATIVE: CASE EVENT DATE: 20191025
